FAERS Safety Report 9354294 (Version 1)
Quarter: 2013Q2

REPORT INFORMATION
  Report Type: Spontaneous
  Country: US (occurrence: US)
  Receive Date: 20130618
  Receipt Date: 20130618
  Transmission Date: 20140414
  Serious: No
  Sender: FDA-Public Use
  Company Number: US-BAYER-2013-073457

PATIENT
  Sex: Female

DRUGS (5)
  1. BETASERON [Suspect]
     Dosage: 0.25 MG, QOD
     Route: 058
  2. ORTHO-NOVUM [Concomitant]
  3. VITAMIN D [Concomitant]
     Dosage: 1000 U, UNK
  4. VITAMIN B12 [Concomitant]
     Dosage: 1000 CR
  5. COENZYME Q10 [Concomitant]
     Dosage: 50 MG, UNK

REACTIONS (3)
  - Injection site erythema [None]
  - Injection site bruising [None]
  - Influenza like illness [None]
